FAERS Safety Report 13867524 (Version 12)
Quarter: 2019Q2

REPORT INFORMATION
  Report Type: Spontaneous
  Country: US (occurrence: US)
  Receive Date: 20170814
  Receipt Date: 20190611
  Transmission Date: 20190711
  Serious: Yes (Death, Other)
  Sender: FDA-Public Use
  Company Number: US-ACTELION-A-US2017-157748

PATIENT
  Age: 88 Year
  Sex: Female
  Weight: 53.52 kg

DRUGS (6)
  1. UPTRAVI [Suspect]
     Active Substance: SELEXIPAG
     Dosage: 1200 MCG, BID
     Route: 048
     Dates: start: 201808
  2. UPTRAVI [Suspect]
     Active Substance: SELEXIPAG
     Dosage: 600 MCG
     Route: 048
  3. UPTRAVI [Suspect]
     Active Substance: SELEXIPAG
     Indication: PULMONARY ARTERIAL HYPERTENSION
     Dosage: 800 MCG, BID
     Route: 048
     Dates: start: 201809
  4. OPSUMIT [Suspect]
     Active Substance: MACITENTAN
     Indication: PULMONARY ARTERIAL HYPERTENSION
     Dosage: 10 MG, QD
     Route: 048
     Dates: start: 20170712
  5. UPTRAVI [Suspect]
     Active Substance: SELEXIPAG
     Dosage: 1000 MCG, BID
     Route: 048
     Dates: start: 201808
  6. UPTRAVI [Suspect]
     Active Substance: SELEXIPAG
     Dosage: UNK
     Route: 048

REACTIONS (24)
  - Headache [Unknown]
  - Anaemia [Not Recovered/Not Resolved]
  - Decreased appetite [Unknown]
  - Limb injury [Unknown]
  - Arthritis [Not Recovered/Not Resolved]
  - Shoulder arthroplasty [Unknown]
  - Corneal operation [Unknown]
  - Back pain [Unknown]
  - Frequent bowel movements [Unknown]
  - Corneal implant [Unknown]
  - Pain [Unknown]
  - Diarrhoea [Unknown]
  - Constipation [Unknown]
  - Fatigue [Unknown]
  - Peripheral swelling [Recovering/Resolving]
  - Pulmonary hypertension [Unknown]
  - Arthralgia [Unknown]
  - Joint swelling [Recovering/Resolving]
  - Death [Fatal]
  - Fluid retention [Unknown]
  - Mobility decreased [Unknown]
  - Pruritus [Not Recovered/Not Resolved]
  - Abnormal sleep-related event [Unknown]
  - Malaise [Unknown]

NARRATIVE: CASE EVENT DATE: 20170724
